FAERS Safety Report 25225166 (Version 2)
Quarter: 2025Q3

REPORT INFORMATION
  Report Type: Report from Study
  Country: US (occurrence: US)
  Receive Date: 20250422
  Receipt Date: 20250802
  Transmission Date: 20251021
  Serious: Yes (Other)
  Sender: ALEXION PHARMACEUTICALS
  Company Number: 202504USA015600US

PATIENT
  Sex: Female

DRUGS (1)
  1. OLAPARIB [Suspect]
     Active Substance: OLAPARIB
     Indication: Ovarian cancer
     Dosage: 150 MILLIGRAM, BID
     Dates: start: 202501, end: 20250414

REACTIONS (2)
  - Renal function test abnormal [Unknown]
  - Ureteric obstruction [Unknown]
